FAERS Safety Report 5052593-1 (Version None)
Quarter: 2006Q3

REPORT INFORMATION
  Report Type: 
  Country: None (occurrence: None)
  Receive Date: 20060717
  Receipt Date: 20060619
  Transmission Date: 20061208
  Serious: Yes (Hospitalization)
  Sender: FDA-Public Use
  Company Number: JP-JPN-A200602147

PATIENT
  Age: 45 Year
  Sex: Female
  Weight: 41 kg

DRUGS (3)
  1. AUGMENTIN '125' [Suspect]
     Indication: CYSTITIS NONINFECTIVE
     Dosage: 1U THREE TIMES PER DAY
     Route: 048
     Dates: start: 20060612, end: 20060615
  2. UNKNOWN DRUG [Concomitant]
     Route: 048
  3. GOSHA-JINKI-GAN [Concomitant]
     Dosage: 2.5G THREE TIMES PER DAY
     Route: 048

REACTIONS (5)
  - ABDOMINAL PAIN [None]
  - DIARRHOEA [None]
  - ENTEROCOLITIS HAEMORRHAGIC [None]
  - HAEMATOCHEZIA [None]
  - MELAENA [None]
